FAERS Safety Report 22536554 (Version 2)
Quarter: 2023Q2

REPORT INFORMATION
  Report Type: Spontaneous
  Country: US (occurrence: US)
  Receive Date: 20230608
  Receipt Date: 20230623
  Transmission Date: 20230722
  Serious: No
  Sender: FDA-Public Use
  Company Number: US-ABBVIE-5278130

PATIENT
  Sex: Female
  Weight: 60 kg

DRUGS (4)
  1. SYNTHROID [Suspect]
     Active Substance: LEVOTHYROXINE SODIUM
     Indication: Thyroid disorder
     Dosage: THE LAST ADMIN DATE WAS MAY 2023.?FORM STRENGTH: 112 MICROGRAM?ONE TABLET A DAY EMPTY STOMACH
     Route: 048
     Dates: start: 20230410
  2. LEVOTHYROXINE [Suspect]
     Active Substance: LEVOTHYROXINE
     Indication: Hypothyroidism
     Dosage: 112 MICROGRAM?A TABLET ONCE A DAY ON EMPTY STOMACH
     Route: 048
     Dates: start: 2021, end: 2021
  3. LEVOTHYROXINE [Suspect]
     Active Substance: LEVOTHYROXINE
     Indication: Hypothyroidism
     Dosage: MYLAN?FORM STRENGTH: 112 MICROGRAM?A TABLET ONCE A DAY ON EMPTY STOMACH
     Route: 048
     Dates: start: 202305
  4. LEVOTHYROXINE [Suspect]
     Active Substance: LEVOTHYROXINE
     Indication: Hypothyroidism
     Dosage: 112 MICROGRAM?A TABLET ONCE A DAY ON EMPTY STOMACH
     Route: 048
     Dates: end: 20230409

REACTIONS (4)
  - Allergy to chemicals [Not Recovered/Not Resolved]
  - Urticaria [Recovered/Resolved]
  - Thyroid hormones increased [Unknown]
  - Urticaria [Recovered/Resolved]

NARRATIVE: CASE EVENT DATE: 20210101
